FAERS Safety Report 7010849-7 (Version None)
Quarter: 2010Q3

REPORT INFORMATION
  Report Type: 
  Country: None (occurrence: None)
  Receive Date: 20100923
  Receipt Date: 20100915
  Transmission Date: 20110219
  Serious: Yes (Hospitalization)
  Sender: FDA-Public Use
  Company Number: DE-ABBOTT-10P-062-0629385-00

PATIENT
  Age: 50 Year
  Sex: Male

DRUGS (15)
  1. VALPROATE SODIUM [Suspect]
     Indication: PRODUCT USED FOR UNKNOWN INDICATION
     Route: 048
     Dates: start: 20091224, end: 20091228
  2. VALPROATE SODIUM [Suspect]
     Route: 048
     Dates: start: 20091229, end: 20091230
  3. VALPROATE SODIUM [Suspect]
     Route: 048
     Dates: start: 20091231, end: 20100107
  4. VALPROATE SODIUM [Suspect]
     Route: 048
     Dates: start: 20100108, end: 20100108
  5. VALPROATE SODIUM [Suspect]
     Route: 048
     Dates: start: 20100109
  6. SEROQUEL [Suspect]
     Indication: PRODUCT USED FOR UNKNOWN INDICATION
     Route: 048
     Dates: start: 20091224, end: 20100104
  7. SEROQUEL [Suspect]
     Route: 048
     Dates: start: 20100106, end: 20100106
  8. SEROQUEL [Suspect]
     Route: 048
     Dates: start: 20100107, end: 20100107
  9. SEROQUEL [Suspect]
     Route: 048
     Dates: start: 20100108, end: 20100108
  10. SEROQUEL [Suspect]
     Route: 048
     Dates: start: 20100109
  11. ANTIPSYCHOTICS [Suspect]
     Indication: PRODUCT USED FOR UNKNOWN INDICATION
     Route: 048
     Dates: start: 20091224
  12. DIAZEPAM [Concomitant]
     Indication: PRODUCT USED FOR UNKNOWN INDICATION
     Dates: start: 20091225
  13. FLUNITRAZEPAM [Concomitant]
     Indication: PRODUCT USED FOR UNKNOWN INDICATION
     Dates: start: 20091225
  14. AMARYL [Concomitant]
     Indication: PRODUCT USED FOR UNKNOWN INDICATION
     Dates: start: 20091225
  15. INSULIN ACTRAPHANE [Concomitant]
     Indication: PRODUCT USED FOR UNKNOWN INDICATION

REACTIONS (3)
  - DELIRIUM [None]
  - HYPONATRAEMIA [None]
  - POLYDIPSIA [None]
